FAERS Safety Report 7537964-3 (Version None)
Quarter: 2011Q2

REPORT INFORMATION
  Report Type: 
  Country: None (occurrence: None)
  Receive Date: 20110609
  Receipt Date: 20110530
  Transmission Date: 20111010
  Serious: Yes (Other)
  Sender: FDA-Public Use
  Company Number: DE-UCBSA-032819

PATIENT
  Sex: Female
  Weight: 65 kg

DRUGS (2)
  1. KEPPRA [Suspect]
     Route: 048
     Dates: start: 20100501
  2. ATACAND [Suspect]
     Indication: HYPERTENSION
     Route: 048
     Dates: start: 20101001

REACTIONS (1)
  - LEUKOPENIA [None]
